FAERS Safety Report 9062842 (Version 2)
Quarter: 2014Q2

REPORT INFORMATION
  Report Type: Report from Study
  Country: CA (occurrence: CA)
  Receive Date: 20130128
  Receipt Date: 20140624
  Transmission Date: 20141212
  Serious: Yes (Other)
  Sender: FDA-Public Use
  Company Number: CA-JNJFOC-20130110525

PATIENT
  Age: 51 Year
  Sex: Female
  Weight: 106.6 kg

DRUGS (2)
  1. REMICADE [Suspect]
     Indication: SARCOIDOSIS
     Dosage: IN SEPT/OCT-2012
     Route: 042
     Dates: start: 2012
  2. REMICADE [Suspect]
     Indication: SARCOIDOSIS
     Route: 042
     Dates: start: 20101223

REACTIONS (2)
  - Cyst [Recovered/Resolved]
  - Cystitis [Unknown]
